FAERS Safety Report 9307999 (Version 1)
Quarter: 2013Q2

REPORT INFORMATION
  Report Type: Spontaneous
  Country: US (occurrence: US)
  Receive Date: 20130524
  Receipt Date: 20130524
  Transmission Date: 20140414
  Serious: No
  Sender: FDA-Public Use
  Company Number: US-PFIZER INC-2013155952

PATIENT
  Age: 48 Year
  Sex: Female
  Weight: 77.55 kg

DRUGS (1)
  1. LEVOXYL [Suspect]
     Indication: HYPOTHYROIDISM
     Dosage: 137 UG, UNK
     Route: 048
     Dates: end: 20130518

REACTIONS (3)
  - Drug ineffective [Unknown]
  - Blood cholesterol increased [Unknown]
  - Malaise [Unknown]
